FAERS Safety Report 6068318 (Version 10)
Quarter: 2016Q1

REPORT INFORMATION
  Report Type: Spontaneous
  Country: US (occurrence: US)
  Receive Date: 20060620
  Receipt Date: 20160201
  Transmission Date: 20160526
  Serious: Yes (Hospitalization, Other)
  Sender: FDA-Public Use
  Company Number: US-ROCHE-440145

PATIENT
  Age: 44 Year
  Sex: Male
  Weight: 74.8 kg

DRUGS (3)
  1. ACCUTANE [Suspect]
     Active Substance: ISOTRETINOIN
     Indication: ACNE
     Route: 048
     Dates: start: 198801, end: 198806
  2. ANAPROX [Concomitant]
     Active Substance: NAPROXEN SODIUM
     Indication: MUSCLE SPASMS
     Dosage: STRENGTH/FORMULATION REPORTED AS: DS
     Route: 048
  3. SOMA COMPOUND [Concomitant]
     Active Substance: ASPIRIN\CARISOPRODOL
     Indication: MUSCLE SPASMS
     Dosage: REPORTED AS: ONE EVERY 4 PRN.
     Route: 048

REACTIONS (13)
  - Deep vein thrombosis [Unknown]
  - Colitis ulcerative [Unknown]
  - Thrombocytosis [Unknown]
  - Nephrolithiasis [Unknown]
  - Herpes zoster [Recovered/Resolved]
  - Anal fungal infection [Unknown]
  - Pulmonary infarction [Unknown]
  - Pulmonary embolism [Recovered/Resolved]
  - Iron deficiency anaemia [Unknown]
  - Brachial plexus injury [Recovering/Resolving]
  - Post herpetic neuralgia [Recovering/Resolving]
  - Crohn^s disease [Unknown]
  - Pancreatitis [Unknown]

NARRATIVE: CASE EVENT DATE: 19941215
